FAERS Safety Report 20678810 (Version 7)
Quarter: 2022Q2

REPORT INFORMATION
  Report Type: Report from Study
  Country: US (occurrence: None)
  Receive Date: 20220406
  Receipt Date: 20220616
  Transmission Date: 20220721
  Serious: Yes (Hospitalization)
  Sender: FDA-Public Use
  Company Number: US-ROCHE-3061741

PATIENT
  Age: 61 Year
  Sex: Male
  Weight: 86.5 kg

DRUGS (21)
  1. ATEZOLIZUMAB [Suspect]
     Active Substance: ATEZOLIZUMAB
     Indication: Skin cancer
     Route: 042
     Dates: start: 20220223
  2. ATEZOLIZUMAB [Suspect]
     Active Substance: ATEZOLIZUMAB
     Route: 042
     Dates: start: 20220316
  3. EFINEPTAKIN ALFA [Suspect]
     Active Substance: EFINEPTAKIN ALFA
     Indication: Skin cancer
     Route: 030
     Dates: start: 20220223
  4. COLCRYS [Concomitant]
     Active Substance: COLCHICINE
     Indication: Gout
     Route: 048
     Dates: start: 202102
  5. ZYLOPRIM [Concomitant]
     Active Substance: ALLOPURINOL
     Indication: Gout
     Dates: start: 202102
  6. BENTYL [Concomitant]
     Active Substance: DICYCLOMINE HYDROCHLORIDE
     Indication: Nausea
     Route: 048
     Dates: start: 202112
  7. BENTYL [Concomitant]
     Active Substance: DICYCLOMINE HYDROCHLORIDE
     Indication: Abdominal pain upper
  8. OXYCODONE [Concomitant]
     Active Substance: OXYCODONE
     Indication: Pain
     Route: 048
     Dates: start: 202110
  9. OXYCODONE [Concomitant]
     Active Substance: OXYCODONE
     Indication: Blood testosterone decreased
     Route: 062
     Dates: start: 201502
  10. BACITRACIN;POLYMYXIN B [Concomitant]
     Dosage: 500-10,000 UNIT
     Route: 061
     Dates: start: 20220401, end: 20220406
  11. DIPHENHYDRAMINE HYDROCHLORIDE\LIDOCAINE HYDROCHLORIDE\NYSTATIN [Concomitant]
     Active Substance: DIPHENHYDRAMINE HYDROCHLORIDE\LIDOCAINE HYDROCHLORIDE\NYSTATIN
     Dosage: 15 ML PRN ORAL (FROM 01-APR-2022 TO 06-APR-2022)
  12. LIDOCAINE [Concomitant]
     Active Substance: LIDOCAINE
     Dosage: 10MG/ML ONCE
     Route: 030
     Dates: start: 20220402, end: 20220406
  13. PIPERACILLIN AND TAZOBACTAM [Concomitant]
     Active Substance: PIPERACILLIN SODIUM\TAZOBACTAM SODIUM
     Indication: Abdominal infection
     Dates: start: 20220403, end: 20220405
  14. CEFEPIME [Concomitant]
     Active Substance: CEFEPIME HYDROCHLORIDE
     Indication: Abdominal infection
     Route: 042
     Dates: start: 20220403
  15. RAMELTEON [Concomitant]
     Active Substance: RAMELTEON
     Route: 048
     Dates: start: 20220403, end: 20220406
  16. CIPROFLOXACIN [Concomitant]
     Active Substance: CIPROFLOXACIN
  17. PANTOPRAZOLE [Concomitant]
     Active Substance: PANTOPRAZOLE
     Dosage: 40 MG QD ORAL (FROM 05-APR-2022 TO 06-APR-2022)
  18. METRONIDAZOLE [Concomitant]
     Active Substance: METRONIDAZOLE
     Indication: Abdominal infection
     Route: 048
     Dates: start: 20220405, end: 20220407
  19. FUROSEMIDE [Concomitant]
     Active Substance: FUROSEMIDE
     Indication: Oedema
     Route: 048
     Dates: start: 20220406, end: 20220409
  20. FAMOTIDINE [Concomitant]
     Active Substance: FAMOTIDINE
     Route: 048
     Dates: start: 20220406
  21. TESTOSTERONE [Concomitant]
     Active Substance: TESTOSTERONE
     Indication: Blood testosterone decreased
     Route: 062
     Dates: start: 201502

REACTIONS (4)
  - Anaemia [Not Recovered/Not Resolved]
  - Small intestinal obstruction [Recovered/Resolved]
  - Sepsis [Recovered/Resolved]
  - Rash maculo-papular [Recovered/Resolved]

NARRATIVE: CASE EVENT DATE: 20220227
